FAERS Safety Report 5587938-7 (Version None)
Quarter: 2008Q1

REPORT INFORMATION
  Report Type: 
  Country: None (occurrence: None)
  Receive Date: 20080111
  Receipt Date: 20071221
  Transmission Date: 20080703
  Serious: Yes (Other)
  Sender: FDA-Public Use
  Company Number: US-JNJFOC-20080101471

PATIENT
  Age: 19 Year
  Sex: Female

DRUGS (2)
  1. MOTRIN [Suspect]
     Indication: PYREXIA
  2. DOXYCYCLINE [Suspect]
     Indication: DRUG USE FOR UNKNOWN INDICATION

REACTIONS (1)
  - DEPRESSION [None]
